FAERS Safety Report 10024178 (Version 1)
Quarter: 2014Q1

REPORT INFORMATION
  Report Type: Spontaneous
  Country: US (occurrence: US)
  Receive Date: 20140320
  Receipt Date: 20140320
  Transmission Date: 20141002
  Serious: No
  Sender: FDA-Public Use
  Company Number: US-PFIZER INC-2014080569

PATIENT
  Sex: 0

DRUGS (7)
  1. ZOLOFT [Suspect]
     Dosage: UNK
  2. TESSALON [Suspect]
     Dosage: UNK
  3. ALLEGRA [Suspect]
     Dosage: UNK
  4. AMARYL [Suspect]
     Dosage: UNK
  5. CODEINE [Suspect]
     Dosage: UNK
  6. CYMBALTA [Suspect]
     Dosage: UNK
  7. AUGMENTIN [Suspect]
     Dosage: UNK

REACTIONS (1)
  - Drug hypersensitivity [Unknown]
